FAERS Safety Report 4382479-7 (Version None)
Quarter: 2004Q2

REPORT INFORMATION
  Report Type: 
  Country: None (occurrence: None)
  Receive Date: 20040610
  Receipt Date: 20040526
  Transmission Date: 20050107
  Serious: No
  Sender: FDA-Public Use
  Company Number: CART-10170

PATIENT
  Age: 40 Year
  Sex: Male

DRUGS (1)
  1. CARTICEL [Suspect]
     Indication: ARTHROPATHY
     Dosage: 1 NA ONCE IS
     Dates: start: 19980401, end: 19980401

REACTIONS (3)
  - CALCINOSIS [None]
  - JOINT INJURY [None]
  - LOOSE BODY IN JOINT [None]
